FAERS Safety Report 6195187-7 (Version None)
Quarter: 2009Q2

REPORT INFORMATION
  Report Type: 
  Country: None (occurrence: None)
  Receive Date: 20090519
  Receipt Date: 20090508
  Transmission Date: 20091009
  Serious: Yes (Hospitalization, Disabling)
  Sender: FDA-Public Use
  Company Number: US-MERCK-0812USA02134

PATIENT
  Age: 49 Year
  Sex: Female

DRUGS (5)
  1. FOSAMAX [Suspect]
     Indication: OSTEOPOROSIS
     Route: 048
     Dates: start: 20000101, end: 20010701
  2. FOSAMAX [Suspect]
     Route: 048
     Dates: start: 20010701, end: 20080107
  3. ARAVA [Concomitant]
     Indication: RHEUMATOID ARTHRITIS
     Route: 065
     Dates: start: 20000101
  4. PREDNISONE [Concomitant]
     Indication: RHEUMATOID ARTHRITIS
     Route: 065
     Dates: start: 20000101
  5. AZMACORT [Concomitant]
     Indication: ASTHMA
     Route: 065
     Dates: start: 19990101, end: 20030828

REACTIONS (9)
  - ABSCESS [None]
  - ARTHROPATHY [None]
  - JAW CYST [None]
  - ORAL INFECTION [None]
  - OSTEOMYELITIS [None]
  - OSTEONECROSIS [None]
  - TOOTH FRACTURE [None]
  - TOOTH LOSS [None]
  - TRISMUS [None]
